FAERS Safety Report 13522111 (Version 1)
Quarter: 2017Q2

REPORT INFORMATION
  Report Type: Spontaneous
  Country: US (occurrence: US)
  Receive Date: 20170508
  Receipt Date: 20170508
  Transmission Date: 20170830
  Serious: Yes (Other)
  Sender: FDA-Public Use
  Company Number: None

PATIENT
  Age: 59 Year
  Sex: Female
  Weight: 83.08 kg

DRUGS (10)
  1. GABAPENTINE [Concomitant]
     Active Substance: GABAPENTIN
  2. SYNTHROID [Concomitant]
     Active Substance: LEVOTHYROXINE SODIUM
  3. TIZANADINE [Concomitant]
     Active Substance: TIZANIDINE
  4. MIDODRINE [Concomitant]
     Active Substance: MIDODRINE
  5. SENNA [Concomitant]
     Active Substance: SENNA LEAF\SENNOSIDES\SENNOSIDES A AND B
  6. BACLOFEN. [Concomitant]
     Active Substance: BACLOFEN
  7. REQUIP [Concomitant]
     Active Substance: ROPINIROLE HYDROCHLORIDE
  8. POTASSIUM [Concomitant]
     Active Substance: POTASSIUM
  9. LASIKS [Concomitant]
  10. PRILOSEC [Suspect]
     Active Substance: OMEPRAZOLE MAGNESIUM
     Indication: DYSPEPSIA
     Dosage: 4 PACKETS 1 TIME A DAY THROUGH MY G-TUBE (FEEDING TUBE)
     Dates: start: 20170322, end: 20170325

REACTIONS (6)
  - Feeling abnormal [None]
  - Mental disorder [None]
  - Restlessness [None]
  - Palpitations [None]
  - Dysphemia [None]
  - Anxiety [None]

NARRATIVE: CASE EVENT DATE: 20170315
